FAERS Safety Report 10269000 (Version 1)
Quarter: 2014Q2

REPORT INFORMATION
  Report Type: Spontaneous
  Country: FR (occurrence: FR)
  Receive Date: 20140630
  Receipt Date: 20140630
  Transmission Date: 20141212
  Serious: Yes (Death, Other)
  Sender: FDA-Public Use
  Company Number: FR-BAXTER-2014BAX035164

PATIENT
  Age: 75 Year
  Sex: Male

DRUGS (3)
  1. ENDOXAN 1000 MG, POUDRE POUR SOLUTION INJECTABLE [Suspect]
     Indication: PERIPHERAL MOTOR NEUROPATHY
     Route: 065
  2. FLUDARABINE [Suspect]
     Indication: PERIPHERAL MOTOR NEUROPATHY
     Route: 065
  3. RITUXIMAB [Suspect]
     Indication: PERIPHERAL MOTOR NEUROPATHY
     Route: 065

REACTIONS (2)
  - Quadriplegia [Unknown]
  - Death [Fatal]
